FAERS Safety Report 21020791 (Version 4)
Quarter: 2022Q3

REPORT INFORMATION
  Report Type: Spontaneous
  Country: US (occurrence: US)
  Receive Date: 20220629
  Receipt Date: 20220708
  Transmission Date: 20221027
  Serious: Yes (Other)
  Sender: FDA-Public Use
  Company Number: US-ELI_LILLY_AND_COMPANY-US202206013369

PATIENT
  Age: 62 Year
  Sex: Male

DRUGS (1)
  1. TRULICITY [Suspect]
     Active Substance: DULAGLUTIDE
     Indication: Diabetes mellitus
     Dosage: UNK UNK, UNKNOWN
     Route: 065
     Dates: start: 202205, end: 202206

REACTIONS (8)
  - Liver injury [Unknown]
  - Pancreatitis [Unknown]
  - Blepharospasm [Unknown]
  - Weight increased [Unknown]
  - Blood glucose fluctuation [Unknown]
  - Pancreatic injury [Unknown]
  - Nausea [Unknown]
  - Abdominal discomfort [Unknown]

NARRATIVE: CASE EVENT DATE: 20220501
